FAERS Safety Report 8871665 (Version 2)
Quarter: 2012Q4

REPORT INFORMATION
  Report Type: 
  Country: ES (occurrence: ES)
  Receive Date: 20121029
  Receipt Date: 20121107
  Transmission Date: 20130627
  Serious: Yes (Other)
  Sender: FDA-Public Use
  Company Number: PHHY2012ES090216

PATIENT
  Sex: Female

DRUGS (2)
  1. GLIVEC [Suspect]
     Dosage: 400 mg
     Route: 048
  2. GLIVEC [Suspect]
     Dosage: 300 mg, UNK
     Route: 048

REACTIONS (2)
  - Myelopathy [Unknown]
  - Intervertebral disc protrusion [Unknown]
